FAERS Safety Report 6021421-X (Version None)
Quarter: 2008Q4

REPORT INFORMATION
  Report Type: 
  Country: None (occurrence: None)
  Receive Date: 20081229
  Receipt Date: 20081224
  Transmission Date: 20090506
  Serious: Yes (Disabling)
  Sender: FDA-Public Use
  Company Number: B0552008A

PATIENT
  Age: 4 Year
  Sex: Male

DRUGS (4)
  1. CLENIL [Suspect]
     Indication: DRUG USE FOR UNKNOWN INDICATION
     Dosage: 50MCG PER DAY
     Route: 055
     Dates: start: 20081016, end: 20081016
  2. CHLORPHENIRAMINE MALEATE [Concomitant]
  3. VENTOLIN [Concomitant]
  4. BECOTIDE [Concomitant]
     Dates: end: 20080101

REACTIONS (4)
  - ADVERSE DRUG REACTION [None]
  - ERYTHEMA [None]
  - EYE SWELLING [None]
  - PRURITUS [None]
